FAERS Safety Report 4483618-X (Version None)
Quarter: 2004Q4

REPORT INFORMATION
  Report Type: 
  Country: None (occurrence: None)
  Receive Date: 20041021
  Receipt Date: 20041021
  Transmission Date: 20050328
  Serious: Yes (Hospitalization)
  Sender: FDA-Public Use
  Company Number: None

PATIENT
  Age: 54 Year
  Sex: Female
  Weight: 60.782 kg

DRUGS (7)
  1. IRINOTECAN HCL [Suspect]
     Indication: ANAL CANCER
     Dosage: 100 MG/M2
     Dates: start: 20040916, end: 20041014
  2. CAPECITABINE [Suspect]
     Indication: ANAL CANCER
     Dosage: 2000 MG/M2
     Dates: start: 20040917, end: 20041020
  3. REGLAN [Concomitant]
  4. PREVACID [Concomitant]
  5. DULCOLAX [Concomitant]
  6. COMPAZINE [Concomitant]
  7. LOPERAMIDE HCL [Concomitant]

REACTIONS (2)
  - BACK PAIN [None]
  - FATIGUE [None]
